FAERS Safety Report 4789023-0 (Version None)
Quarter: 2005Q4

REPORT INFORMATION
  Report Type: 
  Country: None (occurrence: None)
  Receive Date: 20051004
  Receipt Date: 20050923
  Transmission Date: 20060501
  Serious: Yes (Death, Hospitalization, Other)
  Sender: FDA-Public Use
  Company Number: 001-0945-M0200295

PATIENT
  Age: 74 Year
  Sex: Male

DRUGS (5)
  1. NEURONTIN [Suspect]
     Indication: TRIGEMINAL NEURALGIA
     Dosage: 2400 MG (600 MG, QID),
     Dates: start: 20000101
  2. CEREBYX [Suspect]
     Indication: ILL-DEFINED DISORDER
     Dosage: 400 MG (100 MG, Q6H)
  3. METRONIDAZOLE [Suspect]
     Indication: ILL-DEFINED DISORDER
     Dosage: 2000 MG (500 MG, QID)
  4. TEGRETOL [Suspect]
     Indication: ILL-DEFINED DISORDER
     Dosage: 800 MG (200 MG, QID)
  5. AUGMENTIN '125' [Suspect]
     Indication: ILL-DEFINED DISORDER

REACTIONS (12)
  - ARRHYTHMIA [None]
  - CARDIO-RESPIRATORY ARREST [None]
  - COORDINATION ABNORMAL [None]
  - DEEP VEIN THROMBOSIS [None]
  - ELECTROMECHANICAL DISSOCIATION [None]
  - FALL [None]
  - POST PROCEDURAL COMPLICATION [None]
  - PULMONARY EMBOLISM [None]
  - PYREXIA [None]
  - SUBDURAL HAEMATOMA [None]
  - TRIGEMINAL NEURALGIA [None]
  - VOMITING [None]
